FAERS Safety Report 5152766-3 (Version None)
Quarter: 2006Q4

REPORT INFORMATION
  Report Type: 
  Country: None (occurrence: None)
  Receive Date: 20061116
  Receipt Date: 20061031
  Transmission Date: 20070319
  Serious: Yes (Hospitalization, Disabling)
  Sender: FDA-Public Use
  Company Number: GBWYE374331OCT06

PATIENT
  Sex: Male
  Weight: 70 kg

DRUGS (13)
  1. ENBREL [Suspect]
     Indication: PSORIATIC ARTHROPATHY
     Route: 058
     Dates: start: 20031003, end: 20060911
  2. ENBREL [Suspect]
     Indication: AMYLOIDOSIS
     Route: 058
     Dates: end: 20060911
  3. ASCORBIC ACID/NICOTINAMIDE/PYRIDOXINE HYDROCHLORIDE/RIBOFLAVIN/THIAMIN [Concomitant]
     Route: 048
  4. HYDROCORTISONE [Concomitant]
     Route: 048
  5. ATORVASTATIN CALCIUM [Concomitant]
     Route: 048
  6. ALENDRONATE SODIUM [Concomitant]
     Dosage: UNKNOWN
  7. FOLIC ACID [Concomitant]
     Route: 048
  8. CALCIUM CARBONATE [Concomitant]
     Route: 048
  9. ACETYLSALICYLIC ACID SRT [Concomitant]
     Route: 048
  10. EPOGEN [Concomitant]
     Dosage: 3000 UNIT EVERY 1 WK
     Route: 058
  11. ALFACALCIDOL [Concomitant]
     Dosage: UNKNOWN
  12. FERROUS SULFATE TAB [Concomitant]
     Route: 048
  13. OLANZAPINE [Concomitant]
     Route: 048

REACTIONS (4)
  - DELUSIONAL DISORDER, PERSECUTORY TYPE [None]
  - LOWER RESPIRATORY TRACT INFECTION [None]
  - PROCEDURAL HYPOTENSION [None]
  - SYNCOPE [None]
